FAERS Safety Report 16683014 (Version 1)
Quarter: 2019Q3

REPORT INFORMATION
  Report Type: Spontaneous
  Country: US (occurrence: US)
  Receive Date: 20190808
  Receipt Date: 20190808
  Transmission Date: 20191004
  Serious: No
  Sender: FDA-Public Use
  Company Number: US-MYLANLABS-2019M1062251

PATIENT
  Sex: Female
  Weight: 50 kg

DRUGS (1)
  1. ESTRADIOL TRANSDERMAL SYSTEM [Suspect]
     Active Substance: ESTRADIOL
     Indication: HORMONE REPLACEMENT THERAPY
     Dosage: 25 MILLIGRAM
     Route: 062
     Dates: end: 2019

REACTIONS (5)
  - Genital burning sensation [Recovered/Resolved]
  - Feeling abnormal [Recovered/Resolved]
  - Genital discomfort [Recovered/Resolved]
  - Pruritus genital [Recovered/Resolved]
  - Drug ineffective [Recovered/Resolved]

NARRATIVE: CASE EVENT DATE: 2019
